FAERS Safety Report 5270652-5 (Version None)
Quarter: 2007Q1

REPORT INFORMATION
  Report Type: 
  Country: None (occurrence: None)
  Receive Date: 20070321
  Receipt Date: 20070314
  Transmission Date: 20070707
  Serious: No
  Sender: FDA-Public Use
  Company Number: NL-ELI_LILLY_AND_COMPANY-NL200703003314

PATIENT
  Age: 36 Year
  Sex: Male

DRUGS (2)
  1. ZYPREXA [Suspect]
     Dosage: 5 MG, UNK
  2. DEPAKENE [Concomitant]
     Dosage: 1500 MG, UNK

REACTIONS (2)
  - LEUKOPENIA [None]
  - NEUTROPENIA [None]
